FAERS Safety Report 8239346-8 (Version None)
Quarter: 2012Q1

REPORT INFORMATION
  Report Type: 
  Country: None (occurrence: None)
  Receive Date: 20120326
  Receipt Date: 20120315
  Transmission Date: 20120608
  Serious: Yes (Other)
  Sender: FDA-Public Use
  Company Number: VAL_00720_2012

PATIENT
  Age: 75 Year
  Sex: Female

DRUGS (3)
  1. FOSAMAX [Suspect]
     Indication: OSTEOPOROSIS
     Dosage: (1 DF 1X/WEEK ORAL)
     Route: 048
     Dates: start: 20070101
  2. ROCALTROL [Suspect]
     Indication: OSTEOPOROSIS
     Dosage: (0.25 UG QD ORAL) ; (0.5 UG QD ORAL)
     Route: 048
     Dates: start: 20070101, end: 20120101
  3. ROCALTROL [Suspect]
     Indication: OSTEOPOROSIS
     Dosage: (0.25 UG QD ORAL) ; (0.5 UG QD ORAL)
     Route: 048
     Dates: start: 20120101

REACTIONS (5)
  - PUBIC PAIN [None]
  - PAIN [None]
  - CONDITION AGGRAVATED [None]
  - MUSCLE SPASMS [None]
  - DRUG INEFFECTIVE [None]
